FAERS Safety Report 24205521 (Version 1)
Quarter: 2024Q3

REPORT INFORMATION
  Report Type: Spontaneous
  Country: US (occurrence: US)
  Receive Date: 20240813
  Receipt Date: 20240813
  Transmission Date: 20241017
  Serious: No
  Sender: PFIZER
  Company Number: US-PFIZER INC-202400234124

PATIENT

DRUGS (4)
  1. METOPROLOL TARTRATE [Suspect]
     Active Substance: METOPROLOL TARTRATE
     Dosage: UNK
  2. VYNDAMAX [Concomitant]
     Active Substance: TAFAMIDIS
     Dosage: EVERY MORNING
     Route: 048
  3. PATISIRAN [Concomitant]
     Active Substance: PATISIRAN
     Dosage: RECEIVE AN INFUSION EVERY 3 WEEKS
  4. CHOLECALCIFEROL\RETINOL [Concomitant]
     Active Substance: CHOLECALCIFEROL\RETINOL
     Dosage: UNK

REACTIONS (1)
  - Somnolence [Unknown]
